FAERS Safety Report 9183396 (Version 1)
Quarter: 2012Q4

REPORT INFORMATION
  Report Type: 
  Country: CA (occurrence: CA)
  Receive Date: 20121030
  Receipt Date: 20121030
  Transmission Date: 20130627
  Serious: Yes (Other)
  Sender: FDA-Public Use
  Company Number: PHHY2012CA097382

PATIENT
  Age: 76 Year
  Sex: Female
  Weight: 108.39 kg

DRUGS (22)
  1. MYFORTIC [Suspect]
     Dosage: 2 DF,360 mg, 2 tablets every day
     Route: 048
  2. AMOXICILLIN [Concomitant]
  3. AZITHROMYCIN [Concomitant]
  4. ASA [Concomitant]
  5. FLUOROMETHOLONE [Concomitant]
  6. FLUVASTATIN [Concomitant]
  7. FUROSEMIDE [Concomitant]
  8. INSULIN [Concomitant]
  9. KETOROLAC [Concomitant]
  10. LANSOPRAZOLE [Concomitant]
  11. LEVEMIR [Concomitant]
  12. LEVOTHYROXINE [Concomitant]
  13. METOPROLOL [Concomitant]
  14. MYCOPHENOLATE MOFETIL [Concomitant]
  15. NOVO PHANE [Concomitant]
  16. ONE TOUCH [Concomitant]
  17. PREDNISONE [Concomitant]
  18. SALBUTAMOL [Concomitant]
  19. SANDOZ RABEPRAZOLE [Concomitant]
  20. SODIUM ACID PHOSPHATE [Concomitant]
  21. TACROLIMUS [Concomitant]
  22. WARFARIN [Concomitant]

REACTIONS (7)
  - Chromaturia [Recovered/Resolved]
  - Red cell distribution width increased [Recovered/Resolved]
  - Somnolence [Recovered/Resolved]
  - Arthralgia [Recovered/Resolved]
  - Myalgia [Recovered/Resolved]
  - Constipation [Recovered/Resolved]
  - Diarrhoea [Recovered/Resolved]
